FAERS Safety Report 9022181 (Version 2)
Quarter: 2013Q3

REPORT INFORMATION
  Report Type: Spontaneous
  Country: FR (occurrence: FR)
  Receive Date: 20130118
  Receipt Date: 20130919
  Transmission Date: 20140515
  Serious: Yes (Life-Threatening, Hospitalization)
  Sender: FDA-Public Use
  Company Number: FR-ASTRAZENECA-2013SE03058

PATIENT
  Age: 0 Day
  Sex: Female

DRUGS (6)
  1. XEROQUEL [Suspect]
     Indication: BIPOLAR I DISORDER
     Route: 064
     Dates: start: 20120119, end: 20120415
  2. STILNOX [Suspect]
     Indication: BIPOLAR I DISORDER
     Route: 064
     Dates: start: 20120119, end: 20120415
  3. LARGACTIL [Suspect]
     Indication: BIPOLAR I DISORDER
     Route: 064
     Dates: start: 20120119, end: 20120415
  4. TERALITHE [Suspect]
     Indication: BIPOLAR I DISORDER
     Route: 064
     Dates: start: 20120214, end: 20120415
  5. SERESTA [Suspect]
     Indication: BIPOLAR I DISORDER
     Route: 064
     Dates: start: 20120119, end: 20120415
  6. IMOVANE [Suspect]
     Indication: BIPOLAR I DISORDER
     Route: 064
     Dates: start: 20120119, end: 20120415

REACTIONS (8)
  - Hypoglycaemia neonatal [Recovered/Resolved]
  - Jaundice neonatal [Recovered/Resolved]
  - Hypotonia neonatal [Recovered/Resolved]
  - Neonatal tachycardia [Recovered/Resolved]
  - Neonatal respiratory distress syndrome [Recovered/Resolved]
  - Macrosomia [Recovered/Resolved]
  - Psychomotor retardation [Not Recovered/Not Resolved]
  - Drug withdrawal syndrome neonatal [Recovered/Resolved]
